FAERS Safety Report 16614410 (Version 1)
Quarter: 2019Q3

REPORT INFORMATION
  Report Type: Spontaneous
  Country: US (occurrence: US)
  Receive Date: 20190723
  Receipt Date: 20190723
  Transmission Date: 20191004
  Serious: No
  Sender: FDA-Public Use
  Company Number: US-BAYER-2019-137682

PATIENT
  Age: 82 Year
  Sex: Female
  Weight: 58 kg

DRUGS (2)
  1. FISH OIL [Concomitant]
     Active Substance: FISH OIL
     Dosage: UNK
  2. ALEVE [Suspect]
     Active Substance: NAPROXEN SODIUM
     Indication: PAIN
     Dosage: 1 DF
     Route: 048
     Dates: start: 20190722

REACTIONS (2)
  - Product package associated injury [Recovered/Resolved]
  - Wrong technique in product usage process [None]

NARRATIVE: CASE EVENT DATE: 20190722
